FAERS Safety Report 25432447 (Version 1)
Quarter: 2025Q2

REPORT INFORMATION
  Report Type: Spontaneous
  Country: AU (occurrence: AU)
  Receive Date: 20250613
  Receipt Date: 20250613
  Transmission Date: 20250716
  Serious: Yes (Other)
  Sender: AMGEN
  Company Number: AU-AMGEN-AUSSP2025112643

PATIENT
  Age: 71 Year
  Sex: Female

DRUGS (1)
  1. PROLIA [Suspect]
     Active Substance: DENOSUMAB
     Indication: Osteoporosis prophylaxis
     Route: 065

REACTIONS (3)
  - Compression fracture [Unknown]
  - Therapy cessation [Unknown]
  - Off label use [Unknown]

NARRATIVE: CASE EVENT DATE: 20240101
